FAERS Safety Report 12940115 (Version 2)
Quarter: 2016Q4

REPORT INFORMATION
  Report Type: Report from Study
  Country: TW (occurrence: TW)
  Receive Date: 20161114
  Receipt Date: 20161207
  Transmission Date: 20170207
  Serious: Yes (Hospitalization, Other)
  Sender: FDA-Public Use
  Company Number: TW-BRISTOL-MYERS SQUIBB COMPANY-BMS-2016-094060

PATIENT
  Age: 47 Year
  Sex: Female

DRUGS (3)
  1. ABATACEPT [Suspect]
     Active Substance: ABATACEPT
     Indication: RHEUMATOID ARTHRITIS
     Dosage: 500 MG, QMO
     Route: 042
     Dates: start: 20160411
  2. BARACLUDE [Suspect]
     Active Substance: ENTECAVIR
     Indication: PROPHYLAXIS
     Dosage: 1 MG, QD
     Route: 048
     Dates: start: 20150630
  3. RITUXIMAB [Suspect]
     Active Substance: RITUXIMAB
     Indication: PRODUCT USED FOR UNKNOWN INDICATION
     Dosage: UNK
     Route: 065
     Dates: start: 20141218

REACTIONS (6)
  - Product use issue [Unknown]
  - Asthenia [Recovering/Resolving]
  - Immunoglobulin G4 related disease [Unknown]
  - Hepatitis B [Recovering/Resolving]
  - Jaundice [Recovering/Resolving]
  - Autoimmune pancreatitis [Unknown]

NARRATIVE: CASE EVENT DATE: 20161029
